FAERS Safety Report 13237467 (Version 1)
Quarter: 2017Q1

REPORT INFORMATION
  Report Type: Spontaneous
  Country: GB (occurrence: GB)
  Receive Date: 20170215
  Receipt Date: 20170215
  Transmission Date: 20170428
  Serious: Yes (Other)
  Sender: FDA-Public Use
  Company Number: GB-ELI_LILLY_AND_COMPANY-GB201702005432

PATIENT
  Age: 38 Year
  Sex: Female
  Weight: 76.2 kg

DRUGS (2)
  1. CYMBALTA [Suspect]
     Active Substance: DULOXETINE HYDROCHLORIDE
     Indication: FIBROMYALGIA
     Dosage: 1 DF, QD
     Route: 048
     Dates: start: 20170201
  2. DIHYDROCODEINE W/PARACETAMOL [Concomitant]
     Dosage: 30 MG, UNKNOWN
     Route: 065

REACTIONS (4)
  - Poor quality sleep [Unknown]
  - Blepharospasm [Unknown]
  - Ageusia [Unknown]
  - Decreased appetite [Unknown]

NARRATIVE: CASE EVENT DATE: 20170201
